FAERS Safety Report 10935622 (Version 1)
Quarter: 2015Q1

REPORT INFORMATION
  Report Type: Spontaneous
  Country: US (occurrence: US)
  Receive Date: 20150320
  Receipt Date: 20150320
  Transmission Date: 20150721
  Serious: Yes (Other)
  Sender: FDA-Public Use
  Company Number: US-BAYER-2015-036596

PATIENT
  Age: 61 Year
  Sex: Female

DRUGS (6)
  1. CYCLOBENZAPRINE [Concomitant]
     Active Substance: CYCLOBENZAPRINE
     Indication: CERVICAL RADICULOPATHY
     Dosage: UNK
  2. NAPROXEN SODIUM ({= 220 MG) [Suspect]
     Active Substance: NAPROXEN SODIUM
     Indication: IMMUNE TOLERANCE INDUCTION
     Dosage: 100 MG, QD
  3. IBUPROFEN. [Concomitant]
     Active Substance: IBUPROFEN
     Indication: IMMUNE TOLERANCE INDUCTION
  4. NAPROXEN SODIUM ({= 220 MG) [Suspect]
     Active Substance: NAPROXEN SODIUM
     Indication: CERVICAL RADICULOPATHY
     Dosage: UNK
  5. NAPROXEN SODIUM ({= 220 MG) [Suspect]
     Active Substance: NAPROXEN SODIUM
     Indication: CERVICAL RADICULOPATHY
     Dosage: 250 MG, QD
  6. ACETYLSALICYLIC ACID({=100 MG) [Concomitant]
     Active Substance: ASPIRIN
     Indication: IMMUNE TOLERANCE INDUCTION

REACTIONS (7)
  - Polyarthritis [Recovered/Resolved]
  - Headache [Recovered/Resolved]
  - Myalgia [Recovered/Resolved]
  - Serum sickness-like reaction [Recovered/Resolved]
  - Musculoskeletal stiffness [Recovered/Resolved]
  - C-reactive protein increased [Recovered/Resolved]
  - Pyrexia [Recovered/Resolved]
